FAERS Safety Report 22935010 (Version 3)
Quarter: 2024Q1

REPORT INFORMATION
  Report Type: Report from Study
  Country: BG (occurrence: BG)
  Receive Date: 20230912
  Receipt Date: 20240206
  Transmission Date: 20240409
  Serious: Yes (Hospitalization, Other)
  Sender: FDA-Public Use
  Company Number: BG-TAKEDA-2022TUS085758

PATIENT
  Age: 35 Year
  Sex: Male

DRUGS (1)
  1. VEDOLIZUMAB [Suspect]
     Active Substance: VEDOLIZUMAB
     Indication: Colitis ulcerative
     Dosage: 300 MILLIGRAM
     Route: 042
     Dates: start: 20220427

REACTIONS (14)
  - Colitis ulcerative [Unknown]
  - Haematochezia [Unknown]
  - COVID-19 [Unknown]
  - Chest discomfort [Unknown]
  - Frequent bowel movements [Unknown]
  - Mucous stools [Unknown]
  - Weight decreased [Unknown]
  - Drug ineffective [Unknown]
  - Rhinorrhoea [Unknown]
  - Flatulence [Unknown]
  - Dyspepsia [Unknown]
  - Nausea [Unknown]
  - Bronchitis [Unknown]
  - Fatigue [Unknown]

NARRATIVE: CASE EVENT DATE: 20221001
